FAERS Safety Report 6515440-4 (Version None)
Quarter: 2009Q4

REPORT INFORMATION
  Report Type: 
  Country: None (occurrence: None)
  Receive Date: 20091223
  Receipt Date: 20091208
  Transmission Date: 20100525
  Serious: Yes (Hospitalization)
  Sender: FDA-Public Use
  Company Number: US-MYLANLABS-2009S1021060

PATIENT
  Age: 55 Year
  Sex: Female

DRUGS (3)
  1. METHYLTHIONINIUM CHLORIDE [Interacting]
     Dosage: 7.5 MG/KG IN 100ML OF 5% DEXTROSE IN WATER
  2. CITALOPRAM HYDROBROMIDE [Suspect]
     Indication: DEPRESSION
     Dosage: DOSAGE NOT STATED
  3. BUPROPION HCL [Concomitant]
     Indication: DEPRESSION
     Dosage: DOSAGE NOT STATED

REACTIONS (4)
  - DRUG INTERACTION [None]
  - ENCEPHALOPATHY [None]
  - HEPATIC ENZYME INCREASED [None]
  - SEROTONIN SYNDROME [None]
